FAERS Safety Report 10253043 (Version 1)
Quarter: 2014Q2

REPORT INFORMATION
  Report Type: Spontaneous
  Country: FR (occurrence: FR)
  Receive Date: 20140623
  Receipt Date: 20140623
  Transmission Date: 20141212
  Serious: Yes (Hospitalization)
  Sender: FDA-Public Use
  Company Number: FR-ELI_LILLY_AND_COMPANY-FR201406003583

PATIENT
  Age: 76 Year
  Sex: Female

DRUGS (10)
  1. CYMBALTA [Suspect]
     Indication: PRODUCT USED FOR UNKNOWN INDICATION
     Dosage: 30 MG, QD
     Route: 048
     Dates: start: 20140409, end: 20140415
  2. PYOSTACINE [Suspect]
     Indication: ERYSIPELAS
     Dosage: 4 DF, QD
     Route: 048
     Dates: start: 20140409, end: 20140415
  3. PREDNISONE BIOGARAN [Suspect]
     Indication: ERYSIPELAS
     Dosage: 60 MG, QD
     Route: 048
     Dates: start: 20140409, end: 20140415
  4. DAFALGAN CODEINE [Suspect]
     Indication: ERYSIPELAS
     Dosage: 6 DF, QD
     Route: 048
     Dates: start: 20140315, end: 20140415
  5. FLUDEX                             /00340101/ [Concomitant]
  6. XANAX [Concomitant]
     Dosage: 2 TABLETS, QD
  7. INEXIUM                            /01479302/ [Concomitant]
  8. ZOLPIDEM [Concomitant]
  9. TANGANIL                           /00129601/ [Concomitant]
  10. VENTOLIN                           /00139501/ [Concomitant]

REACTIONS (6)
  - Abnormal behaviour [Recovered/Resolved]
  - Speech disorder [Recovered/Resolved]
  - Confusional state [Recovered/Resolved]
  - Hallucination, auditory [Recovered/Resolved]
  - Hallucination, visual [Recovered/Resolved]
  - Drug withdrawal syndrome [Recovered/Resolved]
